FAERS Safety Report 4285855-6 (Version None)
Quarter: 2004Q1

REPORT INFORMATION
  Report Type: 
  Country: None (occurrence: None)
  Receive Date: 20040205
  Receipt Date: 20040114
  Transmission Date: 20041129
  Serious: Yes (Hospitalization)
  Sender: FDA-Public Use
  Company Number: 200410059JP

PATIENT
  Age: 61 Year
  Sex: Female
  Weight: 52.7 kg

DRUGS (7)
  1. ARAVA [Suspect]
     Indication: RHEUMATOID ARTHRITIS
     Route: 048
     Dates: start: 20040106, end: 20040109
  2. PEON [Concomitant]
     Route: 048
     Dates: start: 20031209
  3. ALTAT [Concomitant]
     Route: 048
     Dates: start: 20030820, end: 20031216
  4. MARZULENE S [Concomitant]
     Route: 048
     Dates: start: 20031217
  5. LENDORM [Concomitant]
     Route: 048
     Dates: start: 20031124
  6. INDOMETHACIN [Concomitant]
     Route: 054
     Dates: start: 20031209
  7. PREDONINE [Concomitant]
     Route: 048
     Dates: start: 20031107, end: 20040109

REACTIONS (4)
  - BLOOD GLUCOSE INCREASED [None]
  - DEHYDRATION [None]
  - DIARRHOEA [None]
  - NAUSEA [None]
